FAERS Safety Report 8534703 (Version 3)
Quarter: 2012Q4

REPORT INFORMATION
  Report Type: 
  Country: DK (occurrence: DK)
  Receive Date: 20120427
  Receipt Date: 20120904
  Transmission Date: 20130627
  Serious: Yes (Other)
  Sender: FDA-Public Use
  Company Number: DK-ALLERGAN-1205532US

PATIENT
  Age: 48 Year
  Sex: Female
  Weight: 55 kg

DRUGS (1)
  1. OZURDEX [Suspect]
     Indication: UVEITIS
     Dosage: 0.7 mg, single
     Route: 031
     Dates: start: 20120412, end: 20120412

REACTIONS (2)
  - Hypersensitivity [Unknown]
  - Endophthalmitis [Not Recovered/Not Resolved]
